FAERS Safety Report 13389466 (Version 3)
Quarter: 2017Q3

REPORT INFORMATION
  Report Type: Spontaneous
  Country: IT (occurrence: IT)
  Receive Date: 20170331
  Receipt Date: 20170818
  Transmission Date: 20171127
  Serious: Yes (Hospitalization)
  Sender: FDA-Public Use
  Company Number: IT-ROCHE-1913066

PATIENT
  Age: 91 Year
  Sex: Female

DRUGS (9)
  1. AULIN [Suspect]
     Active Substance: NIMESULIDE
     Indication: PRODUCT USED FOR UNKNOWN INDICATION
     Dosage: 100 MG TABLETS 30 TABLETS
     Route: 048
     Dates: start: 20161231, end: 20170103
  2. DIURESIX (ITALY) [Concomitant]
     Dosage: 14 X 10 MG TABLETS
     Route: 065
  3. MICARDIS [Concomitant]
     Active Substance: TELMISARTAN
     Dosage: 80 MG 28 TABLETS IN A BLISTER PACK ORAL USE
     Route: 065
  4. ALLOPURINOL. [Concomitant]
     Active Substance: ALLOPURINOL
     Route: 048
  5. DRONAL [Concomitant]
     Active Substance: ALENDRONATE SODIUM
     Dosage: 70^ 4 TABLETS IN AN AL/AL BLISTER PACK 70 MG
     Route: 065
  6. MACLADIN [Concomitant]
     Active Substance: CLARITHROMYCIN
     Dosage: 500 MG 1 TAB X 2
     Route: 065
  7. ROCEFIN [Suspect]
     Active Substance: CEFTRIAXONE SODIUM
     Indication: PNEUMONIA
     Dosage: 1 G/3.5 ML 1 VIAL OF POWDER + 1 VIAL OF SOLVENT
     Route: 030
     Dates: start: 20170102, end: 20170104
  8. ALGIX [Concomitant]
     Active Substance: ETORICOXIB
     Route: 065
  9. DIBASE [Concomitant]
     Active Substance: CHOLECALCIFEROL
     Route: 065

REACTIONS (6)
  - Skin exfoliation [Recovered/Resolved]
  - Oedema mouth [Recovered/Resolved]
  - Dyspnoea [Recovered/Resolved]
  - Diarrhoea [Recovered/Resolved]
  - Dysphagia [Recovered/Resolved]
  - Face oedema [Recovered/Resolved]

NARRATIVE: CASE EVENT DATE: 20170104
